FAERS Safety Report 12438081 (Version 1)
Quarter: 2016Q2

REPORT INFORMATION
  Report Type: Spontaneous
  Country: CO (occurrence: CO)
  Receive Date: 20160606
  Receipt Date: 20160606
  Transmission Date: 20160815
  Serious: Yes (Hospitalization, Other)
  Sender: FDA-Public Use
  Company Number: CO-GLAXOSMITHKLINE-CO2016GSK076806

PATIENT
  Age: 7 Year
  Sex: Male

DRUGS (5)
  1. CEFUROXIME. [Suspect]
     Active Substance: CEFUROXIME
     Indication: SINUSITIS
     Dosage: 30 MG/KG, QD
  2. NIFUROXAZIDE [Suspect]
     Active Substance: NIFUROXAZIDE
     Indication: AMOEBIASIS
     Dosage: 5 MG/KG, QD
  3. NALIDIXIC ACID [Suspect]
     Active Substance: NALIDIXIC ACID
     Dosage: 50 MG/KG, QD
  4. AMPICILLIN [Suspect]
     Active Substance: AMPICILLIN
     Indication: PRODUCT USED FOR UNKNOWN INDICATION
     Dosage: 100 MG/KG, QD
  5. METRONIDAZOLE. [Suspect]
     Active Substance: METRONIDAZOLE
     Indication: AMOEBIASIS
     Dosage: 30 MG/KG, QD

REACTIONS (9)
  - Oesophagitis [Recovered/Resolved]
  - Duodenitis [Recovered/Resolved]
  - Clostridium difficile colitis [Recovered/Resolved]
  - Diarrhoea [Recovered/Resolved]
  - Diarrhoea haemorrhagic [Recovered/Resolved]
  - Pyrexia [Recovered/Resolved]
  - Chronic gastritis [Recovered/Resolved]
  - Constipation [Recovered/Resolved]
  - Amoebiasis [Recovered/Resolved]
